FAERS Safety Report 8160402-7 (Version None)
Quarter: 2012Q1

REPORT INFORMATION
  Report Type: 
  Country: None (occurrence: None)
  Receive Date: 20120223
  Receipt Date: 20120217
  Transmission Date: 20120608
  Serious: Yes (Death, Life-Threatening, Hospitalization)
  Sender: FDA-Public Use
  Company Number: FR-PFIZER INC-2012042733

PATIENT
  Age: 61 Year
  Sex: Female

DRUGS (9)
  1. LYRICA [Concomitant]
     Dosage: 100MG/DAY
     Dates: start: 20111201
  2. DURAGESIC-100 [Concomitant]
  3. ZOFRAN [Suspect]
     Dosage: 8MG/DAY
     Route: 042
     Dates: start: 20111205, end: 20111206
  4. OXYCODONE HCL [Concomitant]
  5. SOLU-MEDROL [Suspect]
     Indication: CHEMOTHERAPY
     Dosage: 40MG/DAY
     Route: 042
     Dates: start: 20111205, end: 20111206
  6. IFOSFAMIDE [Suspect]
     Indication: CHEMOTHERAPY
     Dosage: 4160MG/DAY
     Route: 042
     Dates: start: 20111205, end: 20111206
  7. LYRICA [Concomitant]
     Indication: PAIN
     Dosage: 75MG/DAY
     Dates: end: 20111201
  8. MESNA [Suspect]
     Indication: CHEMOTHERAPY
     Dosage: 1300 MG, 3X/DAY
     Route: 042
     Dates: start: 20111205, end: 20111206
  9. EMEND [Suspect]
     Indication: CHEMOTHERAPY
     Dosage: 80MG/DAY
     Route: 048
     Dates: start: 20111205, end: 20111206

REACTIONS (5)
  - URINARY TRACT INFECTION [None]
  - SEPTIC SHOCK [None]
  - MENINGITIS [None]
  - ENCEPHALOPATHY [None]
  - RENAL FAILURE ACUTE [None]
